FAERS Safety Report 8777402 (Version 2)
Quarter: 2013Q1

REPORT INFORMATION
  Report Type: Spontaneous
  Country: US (occurrence: US)
  Receive Date: 20120911
  Receipt Date: 20130114
  Transmission Date: 20140127
  Serious: Yes (Hospitalization)
  Sender: FDA-Public Use
  Company Number: US-BAYER-2012-093912

PATIENT
  Age: 27 Year
  Sex: Female
  Weight: 67.57 kg

DRUGS (4)
  1. YASMIN [Suspect]
     Indication: CONTRACEPTION
     Dosage: UNK
     Dates: end: 20040428
  2. TOPAMAX [Concomitant]
     Indication: MIGRAINE
     Dosage: 75 MG, PER DAY
     Dates: start: 2000, end: 2004
  3. ZITHROMAX TRI-PAK [Concomitant]
     Dosage: 1 TABLET EVERY DAY
     Route: 048
  4. VICODIN [Concomitant]

REACTIONS (3)
  - Deep vein thrombosis [None]
  - Pain [None]
  - Injury [None]
